FAERS Safety Report 25026011 (Version 2)
Quarter: 2025Q1

REPORT INFORMATION
  Report Type: Report from Study
  Country: FR (occurrence: FR)
  Receive Date: 20250301
  Receipt Date: 20250313
  Transmission Date: 20250409
  Serious: No
  Sender: SANDOZ
  Company Number: FR-SANDOZ-SDZ2025FR012691

PATIENT
  Age: 6 Year
  Sex: Female

DRUGS (1)
  1. SOMATROPIN [Suspect]
     Active Substance: SOMATROPIN
     Indication: Product used for unknown indication
     Dosage: 0.8MG PER DAY 7/7D
     Route: 058
     Dates: start: 20250221, end: 20250222

REACTIONS (3)
  - Injection site pain [Not Recovered/Not Resolved]
  - Treatment noncompliance [Unknown]
  - Product preparation error [Unknown]

NARRATIVE: CASE EVENT DATE: 20250221
